FAERS Safety Report 20564810 (Version 2)
Quarter: 2022Q1

REPORT INFORMATION
  Report Type: Spontaneous
  Country: US (occurrence: US)
  Receive Date: 20220308
  Receipt Date: 20220308
  Transmission Date: 20220423
  Serious: No
  Sender: FDA-Public Use
  Company Number: US-ALLERGAN-2118160US

PATIENT
  Sex: Female

DRUGS (3)
  1. ESTRADIOL [Suspect]
     Active Substance: ESTRADIOL
     Indication: Product used for unknown indication
     Dosage: 1 GRAM X 3 PER WEEK
  2. ESTRADIOL [Suspect]
     Active Substance: ESTRADIOL
     Indication: Product used for unknown indication
     Dosage: 2X PER WEEK, A LITTLE LESS THAT 1 GRAM
  3. ESTRADIOL [Suspect]
     Active Substance: ESTRADIOL

REACTIONS (3)
  - Pain [Unknown]
  - Discomfort [Unknown]
  - Product packaging quantity issue [Unknown]
